FAERS Safety Report 19350756 (Version 1)
Quarter: 2021Q2

REPORT INFORMATION
  Report Type: Spontaneous
  Country: US (occurrence: US)
  Receive Date: 20210531
  Receipt Date: 20210531
  Transmission Date: 20210717
  Serious: No
  Sender: FDA-Public Use
  Company Number: US-SA-2021SA176536

PATIENT
  Sex: Male

DRUGS (1)
  1. DUPIXENT [Suspect]
     Active Substance: DUPILUMAB
     Indication: DERMATITIS ATOPIC
     Dosage: WEEKLY
     Route: 058
     Dates: start: 20210512

REACTIONS (4)
  - Eye irritation [Not Recovered/Not Resolved]
  - Inappropriate schedule of product administration [Unknown]
  - Eye disorder [Not Recovered/Not Resolved]
  - Eyelid thickening [Recovered/Resolved]
